FAERS Safety Report 7913040-2 (Version None)
Quarter: 2011Q4

REPORT INFORMATION
  Report Type: 
  Country: None (occurrence: None)
  Receive Date: 20111114
  Receipt Date: 20111109
  Transmission Date: 20120403
  Serious: Yes (Life-Threatening)
  Sender: FDA-Public Use
  Company Number: IN-ASTRAZENECA-2011SE67740

PATIENT
  Age: 9 Month
  Sex: Male
  Weight: 6 kg

DRUGS (10)
  1. SEVOFLURANE [Suspect]
     Indication: MAINTENANCE OF ANAESTHESIA
     Route: 055
  2. ATRACURIUM [Concomitant]
     Indication: HYPOTONIA
     Route: 042
  3. NITROGLYCERIN [Concomitant]
     Route: 042
  4. FENTANYL [Concomitant]
     Route: 042
  5. FENTANYL [Concomitant]
     Indication: ANALGESIC THERAPY
     Route: 042
  6. PROPOFOL [Suspect]
     Indication: INDUCTION OF ANAESTHESIA
     Route: 042
  7. ATROPINE [Suspect]
     Route: 042
  8. EPINEPHRINE [Suspect]
     Route: 042
  9. OXYGEN [Concomitant]
  10. MIDAZOLAM [Concomitant]
     Indication: PREMEDICATION
     Route: 042

REACTIONS (3)
  - HYPOKALAEMIA [None]
  - VENTRICULAR FIBRILLATION [None]
  - ELECTROCARDIOGRAM QT PROLONGED [None]
